FAERS Safety Report 14968025 (Version 1)
Quarter: 2018Q2

REPORT INFORMATION
  Report Type: Report from Study
  Country: US (occurrence: US)
  Receive Date: 20180604
  Receipt Date: 20180604
  Transmission Date: 20180711
  Serious: Yes (Other)
  Sender: FDA-Public Use
  Company Number: US-ROCHE-2133330

PATIENT
  Age: 9 Year
  Sex: Male
  Weight: 39.4 kg

DRUGS (2)
  1. NUTROPIN AQ [Suspect]
     Active Substance: SOMATROPIN
     Indication: GROWTH HORMONE DEFICIENCY
  2. NUTROPIN AQ [Suspect]
     Active Substance: SOMATROPIN
     Indication: DWARFISM
     Dosage: NIGHTLY
     Route: 058

REACTIONS (8)
  - Blood thyroid stimulating hormone increased [Unknown]
  - Blood albumin increased [Unknown]
  - Fatigue [Unknown]
  - Blood phosphorus decreased [Unknown]
  - Growth retardation [Unknown]
  - Strabismus [Recovered/Resolved]
  - Headache [Unknown]
  - Cognitive disorder [Unknown]

NARRATIVE: CASE EVENT DATE: 2013
